FAERS Safety Report 8296922-4 (Version None)
Quarter: 2012Q2

REPORT INFORMATION
  Report Type: 
  Country: None (occurrence: None)
  Receive Date: 20120419
  Receipt Date: 20120410
  Transmission Date: 20120825
  Serious: No
  Sender: FDA-Public Use
  Company Number: US-BIOGENIDEC-2012BI010121

PATIENT
  Age: 59 Year
  Sex: Female

DRUGS (1)
  1. TYSABRI [Suspect]
     Indication: MULTIPLE SCLEROSIS
     Route: 042
     Dates: start: 20110329

REACTIONS (5)
  - PHOTOSENSITIVITY REACTION [None]
  - EYE INFECTION [None]
  - CATARACT OPERATION [None]
  - INTRAOCULAR LENS IMPLANT [None]
  - EYE INFLAMMATION [None]
